FAERS Safety Report 8812144 (Version 1)
Quarter: 2012Q4

REPORT INFORMATION
  Report Type: Report from Study
  Country: FR (occurrence: FR)
  Receive Date: 20120927
  Receipt Date: 20120927
  Transmission Date: 20130627
  Serious: Yes (Other)
  Sender: FDA-Public Use
  Company Number: FR-ROCHE-1128834

PATIENT
  Age: 63 Year
  Sex: Female
  Weight: 82 kg

DRUGS (19)
  1. ROACTEMRA [Suspect]
     Indication: RHEUMATOID ARTHRITIS
     Route: 042
     Dates: start: 20110418
  2. ROACTEMRA [Suspect]
     Route: 065
     Dates: start: 20110615
  3. ROACTEMRA [Suspect]
     Route: 065
     Dates: start: 20110715
  4. ROACTEMRA [Suspect]
     Route: 065
     Dates: start: 20110812
  5. ROACTEMRA [Suspect]
     Route: 065
     Dates: start: 20111010
  6. CORTANCYL [Concomitant]
     Indication: RHEUMATOID ARTHRITIS
     Route: 048
  7. CORTANCYL [Concomitant]
     Route: 065
     Dates: start: 20110715
  8. METHOTREXATE [Concomitant]
     Indication: RHEUMATOID ARTHRITIS
     Route: 048
     Dates: start: 20110418
  9. INEXIUM [Concomitant]
     Dosage: dose: 40
     Route: 065
  10. LAROXYL [Concomitant]
     Dosage: 10 drops
     Route: 065
  11. DIFFU-K [Concomitant]
     Route: 065
  12. SPECIAFOLDINE [Concomitant]
     Route: 065
  13. DAFALGAN [Concomitant]
     Route: 065
  14. OROCAL [Concomitant]
     Route: 065
  15. PROTELOS [Concomitant]
     Route: 065
  16. SPIRONOLACTONE [Concomitant]
     Dosage: dose: 25
     Route: 065
  17. BISOPROLOL [Concomitant]
     Dosage: doe: 10
     Route: 065
  18. HYDROCORTISONE [Concomitant]
     Route: 065
  19. ALTIZIDE [Concomitant]
     Route: 065

REACTIONS (2)
  - Malaise [Recovered/Resolved]
  - Loss of consciousness [Recovered/Resolved]
